FAERS Safety Report 7332668-4 (Version None)
Quarter: 2011Q1

REPORT INFORMATION
  Report Type: 
  Country: None (occurrence: None)
  Receive Date: 20110304
  Receipt Date: 20110302
  Transmission Date: 20110831
  Serious: Yes (Other)
  Sender: FDA-Public Use
  Company Number: SE-PFIZER INC-2011046305

PATIENT
  Age: 64 Year
  Sex: Female

DRUGS (6)
  1. ALVEDON [Concomitant]
     Dosage: UNK
  2. FRAGMIN [Concomitant]
     Dosage: UNK
  3. DIAZEPAM [Concomitant]
     Dosage: UNK
  4. PREDNISOLONE [Suspect]
     Dosage: UNK
  5. COZAAR [Concomitant]
     Dosage: UNK
  6. PROPAVAN [Concomitant]
     Dosage: UNK

REACTIONS (5)
  - DECREASED INTEREST [None]
  - NAUSEA [None]
  - THROMBOSIS [None]
  - DEPRESSED MOOD [None]
  - FEELING ABNORMAL [None]
